FAERS Safety Report 9448380 (Version 3)
Quarter: 2017Q3

REPORT INFORMATION
  Report Type: Spontaneous
  Country: JP (occurrence: JP)
  Receive Date: 20130808
  Receipt Date: 20170707
  Transmission Date: 20171128
  Serious: Yes (Death, Hospitalization)
  Sender: FDA-Public Use
  Company Number: JP-BAYER-2013-071205

PATIENT
  Age: 65 Year
  Sex: Male

DRUGS (16)
  1. TAKEPRON [Concomitant]
     Active Substance: LANSOPRAZOLE
     Indication: PROPHYLAXIS
     Dosage: DAILY DOSE 30 MG
     Route: 048
     Dates: end: 20130603
  2. OXYCONTIN [Concomitant]
     Active Substance: OXYCODONE HYDROCHLORIDE
     Indication: RECTAL CANCER
     Dosage: DAILY DOSE 20 MG
     Route: 048
     Dates: start: 20130725, end: 20130818
  3. ROHYPNOL [Concomitant]
     Active Substance: FLUNITRAZEPAM
     Dosage: DAILY DOSE 4 MG
     Route: 048
     Dates: end: 20130818
  4. CODEINE PHOSPHATE [Concomitant]
     Active Substance: CODEINE PHOSPHATE
     Indication: RECTAL CANCER
     Dosage: DAILY DOSE 10 MG
     Route: 048
     Dates: end: 20130804
  5. GASLON [Concomitant]
     Active Substance: IRSOGLADINE MALEATE
     Indication: PROPHYLAXIS
     Dosage: DAILY DOSE 4 MG
     Route: 048
     Dates: end: 20130818
  6. PANITUMUMAB [Concomitant]
     Active Substance: PANITUMUMAB
     Dosage: UNK
  7. BARACLUDE [Concomitant]
     Active Substance: ENTECAVIR
     Dosage: DAILY DOSE .5 MG
     Route: 048
     Dates: end: 20130818
  8. ASPARTATE CALCIUM [Concomitant]
     Active Substance: CALCIUM ASPARTATE
     Indication: HYPOCALCAEMIA
     Dosage: DAILY DOSE 600 MG
     Route: 048
     Dates: end: 20130818
  9. CODEINE PHOSPHATE [Concomitant]
     Active Substance: CODEINE PHOSPHATE
     Indication: RECTAL CANCER
     Dosage: DAILY DOSE 20 MG
     Route: 048
     Dates: end: 20130727
  10. STIVARGA [Suspect]
     Active Substance: REGORAFENIB
     Indication: RECTAL CANCER
     Dosage: 120 MG, QD
     Route: 048
     Dates: start: 20130702, end: 20130813
  11. HYPEN [Concomitant]
     Active Substance: ETODOLAC
     Indication: RECTAL CANCER
     Dosage: DAILY DOSE 200 MG
     Route: 048
     Dates: end: 20130818
  12. OXYCONTIN [Concomitant]
     Active Substance: OXYCODONE HYDROCHLORIDE
     Indication: RECTAL CANCER
     Dosage: DAILY DOSE 10 MG
     Route: 048
     Dates: end: 20130724
  13. FUROSEMIDE. [Concomitant]
     Active Substance: FUROSEMIDE
     Indication: RECTAL CANCER
     Dosage: DAILY DOSE 10 MG
     Route: 048
     Dates: end: 20130818
  14. FAMOSTAGINE [Concomitant]
     Active Substance: FAMOTIDINE
     Indication: PROPHYLAXIS
     Dosage: DAILY DOSE 40 MG
     Route: 048
     Dates: start: 20130604, end: 20130818
  15. RINDERON V [Concomitant]
     Active Substance: BETAMETHASONE VALERATE
     Indication: RECTAL CANCER
     Dosage: DAILY DOSE 4 MG
     Route: 048
     Dates: start: 20130726, end: 20130818
  16. STIVARGA [Suspect]
     Active Substance: REGORAFENIB
     Indication: RECTAL CANCER
     Dosage: 160 MG, QD
     Route: 048
     Dates: start: 20130528, end: 20130625

REACTIONS (6)
  - Protein urine present [Not Recovered/Not Resolved]
  - Rectal cancer [Fatal]
  - Palmar-plantar erythrodysaesthesia syndrome [Not Recovered/Not Resolved]
  - Alanine aminotransferase increased [Not Recovered/Not Resolved]
  - Pneumonia [Recovered/Resolved]
  - Aspartate aminotransferase increased [Not Recovered/Not Resolved]

NARRATIVE: CASE EVENT DATE: 20130604
